FAERS Safety Report 25906073 (Version 2)
Quarter: 2025Q4

REPORT INFORMATION
  Report Type: Report from Study
  Country: US (occurrence: US)
  Receive Date: 20251010
  Receipt Date: 20251031
  Transmission Date: 20260117
  Serious: Yes (Hospitalization)
  Sender: EISAI
  Company Number: US-Eisai-EC-2025-197960

PATIENT
  Age: 64 Year
  Sex: Female

DRUGS (10)
  1. LENVIMA [Suspect]
     Active Substance: LENVATINIB
     Indication: Renal cancer
     Dosage: STARTING DOSE 14MG (MULTIPLE DOSE CHAGES)
     Route: 048
     Dates: start: 20231228, end: 20241002
  2. LENVIMA [Suspect]
     Active Substance: LENVATINIB
     Route: 048
     Dates: start: 20250920
  3. LENVIMA [Suspect]
     Active Substance: LENVATINIB
     Route: 048
     Dates: start: 20251001, end: 20251008
  4. EVEROLIMUS [Suspect]
     Active Substance: EVEROLIMUS
     Indication: Renal cancer
     Dates: end: 20241024
  5. EVEROLIMUS [Suspect]
     Active Substance: EVEROLIMUS
     Dates: start: 20250920, end: 20250930
  6. EVEROLIMUS [Suspect]
     Active Substance: EVEROLIMUS
     Dates: start: 20251001
  7. CABOMETYX [Concomitant]
     Active Substance: CABOZANTINIB S-MALATE
  8. NIFEDIPINE [Concomitant]
     Active Substance: NIFEDIPINE
  9. VALACYCLOVIR [Concomitant]
     Active Substance: VALACYCLOVIR HYDROCHLORIDE
  10. DOXYCYCLINE [Concomitant]
     Active Substance: DOXYCYCLINE

REACTIONS (11)
  - Platelet count decreased [Recovering/Resolving]
  - Blood phosphorus decreased [Recovering/Resolving]
  - Internal haemorrhage [Recovering/Resolving]
  - Rectal haemorrhage [Recovering/Resolving]
  - Musculoskeletal chest pain [Recovering/Resolving]
  - Constipation [Unknown]
  - Renal impairment [Recovering/Resolving]
  - Syncope [Recovering/Resolving]
  - Seizure [Recovering/Resolving]
  - Haemorrhage intracranial [Recovering/Resolving]
  - Drug ineffective [Unknown]

NARRATIVE: CASE EVENT DATE: 20250901
